FAERS Safety Report 5588026-6 (Version None)
Quarter: 2008Q1

REPORT INFORMATION
  Report Type: 
  Country: None (occurrence: None)
  Receive Date: 20080111
  Receipt Date: 20071206
  Transmission Date: 20080703
  Serious: Yes (Hospitalization)
  Sender: FDA-Public Use
  Company Number: US-PFIZER INC-2007099247

PATIENT
  Sex: Male
  Weight: 179.6 kg

DRUGS (6)
  1. ZIPRASIDONE (CAPS) [Suspect]
     Dosage: FREQ:FREQUENCY 3 QHS
     Route: 048
     Dates: start: 20071011, end: 20071118
  2. ALLEGRA [Concomitant]
     Route: 048
  3. ACIPHEX [Concomitant]
     Route: 048
     Dates: start: 19970101
  4. ANDROGEL [Concomitant]
     Route: 048
     Dates: start: 20070522
  5. VYTORIN [Concomitant]
     Route: 048
     Dates: start: 20070522
  6. LORAZEPAM [Concomitant]
     Route: 048
     Dates: start: 20071114, end: 20071114

REACTIONS (1)
  - ABDOMINAL PAIN [None]
